FAERS Safety Report 7711889-2 (Version None)
Quarter: 2011Q3

REPORT INFORMATION
  Report Type: 
  Country: None (occurrence: None)
  Receive Date: 20110826
  Receipt Date: 20110824
  Transmission Date: 20111222
  Serious: Yes (Other)
  Sender: FDA-Public Use
  Company Number: DE-SANOFI-AVENTIS-2011SA054059

PATIENT
  Age: 82 Year
  Sex: Male
  Weight: 96 kg

DRUGS (6)
  1. DRONEDARONE HCL [Suspect]
     Indication: ATRIAL FIBRILLATION
     Route: 048
     Dates: start: 20100701, end: 20110808
  2. ALISKIREN [Concomitant]
     Indication: BLOOD PRESSURE MANAGEMENT
     Route: 065
     Dates: start: 20110601, end: 20110808
  3. CLOPIDOGREL [Concomitant]
     Indication: CORONARY ARTERY DISEASE
     Route: 065
     Dates: start: 20090101
  4. EZETIMIBE [Concomitant]
     Route: 065
     Dates: start: 20110101
  5. ACETYLSALICYLIC ACID SRT [Concomitant]
     Indication: CORONARY ARTERY DISEASE
     Route: 065
     Dates: start: 20090101
  6. METOPROLOL TARTRATE [Concomitant]
     Route: 065
     Dates: start: 20110101

REACTIONS (2)
  - RENAL FUNCTION TEST ABNORMAL [None]
  - BLOOD CREATININE INCREASED [None]
